FAERS Safety Report 18425854 (Version 1)
Quarter: 2020Q4

REPORT INFORMATION
  Report Type: Spontaneous
  Country: US (occurrence: US)
  Receive Date: 20201026
  Receipt Date: 20201026
  Transmission Date: 20210114
  Serious: No
  Sender: FDA-Public Use
  Company Number: US-MYLANLABS-2020M1088250

PATIENT
  Age: 74 Year
  Sex: Female

DRUGS (1)
  1. ACITRETIN CAPSULES USP [Suspect]
     Active Substance: ACITRETIN
     Indication: PRODUCT USED FOR UNKNOWN INDICATION
     Dosage: HALF A TABLET
     Route: 048
     Dates: start: 20200103, end: 20200526

REACTIONS (2)
  - Wrong technique in product usage process [Unknown]
  - Drug ineffective [Recovering/Resolving]

NARRATIVE: CASE EVENT DATE: 20200103
